FAERS Safety Report 19120731 (Version 1)
Quarter: 2021Q2

REPORT INFORMATION
  Report Type: Other
  Country: TW (occurrence: TW)
  Receive Date: 20210412
  Receipt Date: 20210412
  Transmission Date: 20210717
  Serious: Yes (Other)
  Sender: FDA-Public Use
  Company Number: TW-ROCHE-2806516

PATIENT
  Age: 66 Year
  Sex: Male

DRUGS (1)
  1. LUCENTIS [Suspect]
     Active Substance: RANIBIZUMAB
     Indication: NEOVASCULAR AGE-RELATED MACULAR DEGENERATION
     Dosage: PRN
     Route: 047
     Dates: start: 20191119

REACTIONS (4)
  - Subretinal fluid [Unknown]
  - Vision blurred [Unknown]
  - Retinal dystrophy [Unknown]
  - Intraocular pressure test abnormal [Unknown]

NARRATIVE: CASE EVENT DATE: 20191203
